FAERS Safety Report 11661564 (Version 3)
Quarter: 2015Q4

REPORT INFORMATION
  Report Type: Spontaneous
  Country: FR (occurrence: FR)
  Receive Date: 20151026
  Receipt Date: 20151111
  Transmission Date: 20160304
  Serious: Yes (Hospitalization, Other)
  Sender: FDA-Public Use
  Company Number: FR-PFIZER INC-2015352968

PATIENT
  Age: 49 Year
  Sex: Female

DRUGS (9)
  1. MEPRONIZINE /00647801/ [Concomitant]
  2. ATARAX [Concomitant]
     Active Substance: HYDROXYZINE\HYDROXYZINE HYDROCHLORIDE
  3. SEROPLEX [Concomitant]
     Active Substance: ESCITALOPRAM OXALATE
  4. VALIUM [Concomitant]
     Active Substance: DIAZEPAM
  5. XANAX [Suspect]
     Active Substance: ALPRAZOLAM
     Indication: SUICIDE ATTEMPT
     Dosage: 15 G, SINGLE
     Route: 048
     Dates: start: 20140116
  6. VITAMIN B1 AND B6 [Concomitant]
     Active Substance: PYRIDOXINE HYDROCHLORIDE\THIAMINE HYDROCHLORIDE
  7. DOLIPRANE [Suspect]
     Active Substance: ACETAMINOPHEN
     Indication: SUICIDE ATTEMPT
     Dosage: 24 G, SINGLE
     Route: 048
     Dates: start: 20140114
  8. MAG2 [Concomitant]
  9. EZETROL [Concomitant]
     Active Substance: EZETIMIBE

REACTIONS (3)
  - Overdose [Unknown]
  - Hepatocellular injury [Unknown]
  - Suicide attempt [Unknown]

NARRATIVE: CASE EVENT DATE: 20140114
